FAERS Safety Report 16565952 (Version 2)
Quarter: 2019Q4

REPORT INFORMATION
  Report Type: Spontaneous
  Country: CN (occurrence: CN)
  Receive Date: 20190712
  Receipt Date: 20191202
  Transmission Date: 20200122
  Serious: Yes (Other)
  Sender: FDA-Public Use
  Company Number: CN-ASTRAZENECA-2019SE98919

PATIENT
  Age: 14025 Day
  Sex: Female
  Weight: 57 kg

DRUGS (3)
  1. PULMICORT RESPULES [Suspect]
     Active Substance: BUDESONIDE
     Indication: PNEUMONIA
     Route: 055
     Dates: start: 20190606, end: 20190608
  2. SODIUM CHLORIDE. [Concomitant]
     Active Substance: SODIUM CHLORIDE
     Indication: PNEUMONIA
     Dates: start: 20190606, end: 20190608
  3. BRICANYL [Suspect]
     Active Substance: TERBUTALINE SULFATE
     Indication: PNEUMONIA
     Route: 055
     Dates: start: 20190606, end: 20190608

REACTIONS (5)
  - Asthenia [Recovering/Resolving]
  - Dizziness [Recovering/Resolving]
  - Tremor [Recovering/Resolving]
  - Palpitations [Recovering/Resolving]
  - Discomfort [Recovering/Resolving]

NARRATIVE: CASE EVENT DATE: 20190608
